FAERS Safety Report 5052692-4 (Version None)
Quarter: 2006Q3

REPORT INFORMATION
  Report Type: 
  Country: None (occurrence: None)
  Receive Date: 20060717
  Receipt Date: 20060711
  Transmission Date: 20061208
  Serious: Yes (Disabling)
  Sender: FDA-Public Use
  Company Number: FI-JNJFOC-20060702520

PATIENT
  Age: 68 Year
  Sex: Female

DRUGS (3)
  1. DOXORUBICIN HCL [Suspect]
     Dosage: DOSE, FREQENCY UNSPECIFIED
     Route: 042
  2. DOXORUBICIN HCL [Suspect]
     Dosage: DOSE, FREQENCY UNSPECIFIED
     Route: 042
  3. DOXORUBICIN HCL [Suspect]
     Indication: OVARIAN CANCER
     Dosage: DOSE, FREQUENCY UNSPECIFIED
     Route: 042

REACTIONS (1)
  - SUDDEN HEARING LOSS [None]
